FAERS Safety Report 5993312-1 (Version None)
Quarter: 2008Q4

REPORT INFORMATION
  Report Type: 
  Country: None (occurrence: None)
  Receive Date: 20081210
  Receipt Date: 20081210
  Transmission Date: 20090506
  Serious: Yes (Disabling)
  Sender: FDA-Public Use
  Company Number: None

PATIENT
  Age: 23 Year
  Sex: Male
  Weight: 99.7913 kg

DRUGS (3)
  1. MODAFINIL [Suspect]
     Indication: ATTENTION DEFICIT/HYPERACTIVITY DISORDER
     Dosage: 400MG ONCE DAILY PO
     Route: 048
     Dates: start: 20081130, end: 20081205
  2. ESCITALOPRAM [Concomitant]
  3. DOXYLAMINE [Concomitant]

REACTIONS (4)
  - DRUG HYPERSENSITIVITY [None]
  - OESOPHAGEAL PAIN [None]
  - OESOPHAGITIS [None]
  - SERUM SICKNESS [None]
